FAERS Safety Report 7737529-4 (Version None)
Quarter: 2011Q3

REPORT INFORMATION
  Report Type: 
  Country: None (occurrence: None)
  Receive Date: 20110817
  Receipt Date: 20110311
  Transmission Date: 20111222
  Serious: Yes (Life-Threatening, Other)
  Sender: FDA-Public Use
  Company Number: 201110116

PATIENT
  Sex: Female

DRUGS (1)
  1. LIORESAL [Suspect]
     Indication: MUSCLE SPASTICITY
     Dosage: MCG, DAILY, INTRATHECAL
     Route: 037

REACTIONS (6)
  - IMPLANT SITE INFECTION [None]
  - VOMITING [None]
  - COMA [None]
  - RESPIRATORY DISTRESS [None]
  - OVERDOSE [None]
  - SOMNOLENCE [None]
